FAERS Safety Report 19065957 (Version 1)
Quarter: 2021Q1

REPORT INFORMATION
  Report Type: Spontaneous
  Country: DE (occurrence: DE)
  Receive Date: 20210327
  Receipt Date: 20210327
  Transmission Date: 20210420
  Serious: Yes (Other)
  Sender: FDA-Public Use
  Company Number: DE-TEVA-2021-DE-1894491

PATIENT
  Sex: Female

DRUGS (9)
  1. KNOBLAUCH MISTEL WEISSDORN [Suspect]
     Active Substance: HERBALS
     Route: 065
  2. GINKOBIL 40MG [Suspect]
     Active Substance: GINKGO
     Dosage: 80 MILLIGRAM DAILY; 1?0?1
     Route: 065
  3. RAMIPRIL 5MG [Suspect]
     Active Substance: RAMIPRIL
     Dosage: 5 MILLIGRAM DAILY; 0?0?1
     Route: 065
  4. EFEROX [Suspect]
     Active Substance: LEVOTHYROXINE SODIUM
     Dosage: 75 MICROGRAM DAILY; 1?0?0
     Route: 065
  5. INEGY 10 MG/40 MG [Suspect]
     Active Substance: EZETIMIBE\SIMVASTATIN
     Dosage: 1 DOSAGE FORMS DAILY; 0?0?1
     Route: 065
  6. COLECALCIFEROL [Suspect]
     Active Substance: CHOLECALCIFEROL
     Dosage: 14 DAYS 1:UNIT DOSE:1DOSAGEFORM
     Route: 065
  7. METOPROLOL 100MG [Suspect]
     Active Substance: METOPROLOL
     Dosage: 100 MILLIGRAM DAILY; 1/2?0?1/2:UNIT DOSE:50MILLIGRAM
     Route: 065
  8. ASS 100 [Suspect]
     Active Substance: ASPIRIN
     Dosage: 100 MILLIGRAM DAILY; 0?1?0
     Route: 065
  9. VITAMIN B COMPLEX NOS [Suspect]
     Active Substance: CYANOCOBALAMIN\PYRIDOXINE HYDROCHLORIDE\RIBOFLAVIN\SODIUM PANTOTHENATE\THIAMINE HYDROCHLORIDE\VITAMIN B COMPLEX
     Route: 065

REACTIONS (1)
  - Polyneuropathy [Unknown]
